FAERS Safety Report 14019000 (Version 1)
Quarter: 2017Q3

REPORT INFORMATION
  Report Type: Report from Study
  Country: FR (occurrence: FR)
  Receive Date: 20170928
  Receipt Date: 20170928
  Transmission Date: 20171128
  Serious: Yes (Death)
  Sender: FDA-Public Use
  Company Number: FR-ROCHE-1999921

PATIENT
  Age: 34 Year
  Sex: Male

DRUGS (3)
  1. TOTAL BODY IRRADIATION [Concomitant]
     Active Substance: UNSPECIFIED INGREDIENT
     Dosage: 2 X 2 GY/DAY FROM DAY -6 TO DAY -4.
     Route: 065
  2. MYCOPHENOLATE MOFETIL. [Suspect]
     Active Substance: MYCOPHENOLATE MOFETIL
     Indication: ACUTE GRAFT VERSUS HOST DISEASE
     Route: 065
  3. CYCLOPHOSPHAMIDE. [Concomitant]
     Active Substance: CYCLOPHOSPHAMIDE
     Dosage: DAY -3 TO -2
     Route: 065

REACTIONS (2)
  - Sepsis [Fatal]
  - Acute myeloid leukaemia recurrent [Fatal]
